FAERS Safety Report 17436856 (Version 1)
Quarter: 2020Q1

REPORT INFORMATION
  Report Type: Spontaneous
  Country: US (occurrence: US)
  Receive Date: 20200219
  Receipt Date: 20200219
  Transmission Date: 20200409
  Serious: No
  Sender: FDA-Public Use
  Company Number: US-JNJFOC-20200145767

PATIENT
  Sex: Female
  Weight: 73.09 kg

DRUGS (1)
  1. WOMENS ROGAINE [Suspect]
     Active Substance: MINOXIDIL
     Indication: ALOPECIA
     Dosage: JUST A DROP?THE PATIENT USED THE PRODUCT FOR LAST TIME ON 27/JAN/2020.
     Route: 061

REACTIONS (2)
  - Expired product administered [Unknown]
  - Incorrect dose administered [Unknown]
